FAERS Safety Report 7409030-9 (Version None)
Quarter: 2011Q2

REPORT INFORMATION
  Report Type: 
  Country: None (occurrence: None)
  Receive Date: 20110412
  Receipt Date: 20110330
  Transmission Date: 20111010
  Serious: Yes (Other)
  Sender: FDA-Public Use
  Company Number: PHHY2011GB26119

PATIENT
  Age: 82 Year
  Sex: Female

DRUGS (8)
  1. BUMETANIDE [Concomitant]
     Indication: POLYURIA
     Dosage: TABLET 1 MG ONCE DAILY
  2. CANDESARTAN [Concomitant]
     Dosage: UNK UKN, UNK
  3. AMLODIPINE [Concomitant]
     Indication: BLOOD PRESSURE
     Dosage: 5MG
  4. WARFARIN [Suspect]
     Indication: ATRIAL FIBRILLATION
     Dosage: 2 MG DAILY
  5. WARFARIN [Suspect]
     Dosage: 5MG ONCE DAILY
  6. TAMSULOSIN [Concomitant]
     Indication: URINARY INCONTINENCE
     Dosage: 400MCG ONCE DAILY
  7. HUMALOG [Concomitant]
     Dosage: 25 IN THE MORNING AND MIX 50 IN THE EVENING
  8. EZETIMIBE [Concomitant]
     Indication: BLOOD CHOLESTEROL INCREASED
     Dosage: UNK UKN, UNK

REACTIONS (1)
  - HYPOGLYCAEMIA [None]
